FAERS Safety Report 18737286 (Version 1)
Quarter: 2021Q1

REPORT INFORMATION
  Report Type: Spontaneous
  Country: US (occurrence: US)
  Receive Date: 20210113
  Receipt Date: 20210113
  Transmission Date: 20210419
  Serious: Yes (Death)
  Sender: FDA-Public Use
  Company Number: US-SPECGX-T202002407

PATIENT
  Age: 24 Year
  Sex: Male

DRUGS (6)
  1. FENTANYL CITRATE. [Suspect]
     Active Substance: FENTANYL CITRATE
     Dosage: UNK
     Route: 065
  2. COCAINE [Suspect]
     Active Substance: COCAINE
     Dosage: UNK
     Route: 065
  3. FENTANYL CITRATE. [Suspect]
     Active Substance: FENTANYL CITRATE
     Indication: PRODUCT USED FOR UNKNOWN INDICATION
     Dosage: UNK
  4. COCAINE [Suspect]
     Active Substance: COCAINE
     Indication: PRODUCT USED FOR UNKNOWN INDICATION
     Dosage: UNK
  5. METHAMPHETAMINE [Suspect]
     Active Substance: METHAMPHETAMINE
     Indication: PRODUCT USED FOR UNKNOWN INDICATION
     Dosage: UNK
  6. METHAMPHETAMINE [Suspect]
     Active Substance: METHAMPHETAMINE
     Dosage: UNK
     Route: 065

REACTIONS (2)
  - Drug abuse [Fatal]
  - Incorrect route of product administration [Fatal]

NARRATIVE: CASE EVENT DATE: 2019
